FAERS Safety Report 25865039 (Version 4)
Quarter: 2025Q4

REPORT INFORMATION
  Report Type: Report from Study
  Country: EU (occurrence: EU)
  Receive Date: 20250930
  Receipt Date: 20251023
  Transmission Date: 20260118
  Serious: Yes (Other)
  Sender: JOHNSON AND JOHNSON
  Company Number: EU-JNJFOC-20250820598

PATIENT
  Age: 55 Year
  Sex: Female

DRUGS (3)
  1. TECLISTAMAB [Suspect]
     Active Substance: TECLISTAMAB
     Indication: Plasma cell myeloma
     Dosage: 1.50 MG/KG
     Route: 065
     Dates: start: 20231115, end: 20231115
  2. TECLISTAMAB [Suspect]
     Active Substance: TECLISTAMAB
     Dosage: 0.30 MG/KG
     Route: 065
     Dates: start: 20231109, end: 20231109
  3. TECLISTAMAB [Suspect]
     Active Substance: TECLISTAMAB
     Dosage: 0.06 MG/KG
     Route: 065
     Dates: start: 20231106, end: 20231106

REACTIONS (9)
  - Thrombocytopenia [Recovered/Resolved]
  - Neutropenia [Recovered/Resolved]
  - Hepatitis E [Unknown]
  - Papillary thyroid cancer [Recovered/Resolved]
  - Cerebral haematoma [Recovered/Resolved]
  - Lymphopenia [Not Recovered/Not Resolved]
  - Anaemia [Recovered/Resolved]
  - Post-acute COVID-19 syndrome [Recovered/Resolved]
  - Adverse event [Unknown]

NARRATIVE: CASE EVENT DATE: 20231106
